FAERS Safety Report 13006706 (Version 2)
Quarter: 2017Q1

REPORT INFORMATION
  Report Type: Report from Study
  Country: FR (occurrence: FR)
  Receive Date: 20161207
  Receipt Date: 20170103
  Transmission Date: 20170428
  Serious: Yes (Hospitalization, Other)
  Sender: FDA-Public Use
  Company Number: FR-GILEAD-2016-0247128

PATIENT
  Age: 64 Year
  Sex: Female

DRUGS (14)
  1. MAGNE B6                           /00869101/ [Concomitant]
     Dosage: 1 DF, BID
     Dates: start: 20140303
  2. LEVEMIR [Concomitant]
     Active Substance: INSULIN DETEMIR
     Indication: DIABETES MELLITUS
     Dosage: 18 IU, QD
     Dates: start: 201112
  3. SOFOSBUVIR [Suspect]
     Active Substance: SOFOSBUVIR
     Indication: HEPATITIS C
     Dosage: 400 MG, QD
     Route: 065
     Dates: start: 20140320
  4. NOROXINE [Concomitant]
     Active Substance: NORFLOXACIN
     Dosage: 400 MG, QD
  5. LASILIX                            /00032601/ [Concomitant]
     Active Substance: FUROSEMIDE
     Indication: ASCITES
     Dosage: 40 MG, QD
     Dates: start: 20120329
  6. INEXIUM                            /01479302/ [Concomitant]
     Active Substance: ESOMEPRAZOLE MAGNESIUM
     Dosage: 40 MG, QD
  7. COUMADINE [Concomitant]
     Active Substance: WARFARIN SODIUM
     Dosage: 2 MG, QD
     Dates: start: 20150227
  8. DACLATASVIR. [Concomitant]
     Active Substance: DACLATASVIR
     Indication: HEPATITIS C
     Dosage: 60 MG, QD
     Route: 065
     Dates: start: 20140320
  9. ALDACTONE [Concomitant]
     Active Substance: SPIRONOLACTONE
     Indication: ASCITES
     Dosage: 100 MG, BID
     Dates: start: 201102
  10. LEVEMIR [Concomitant]
     Active Substance: INSULIN DETEMIR
     Dosage: 8 IU, QD
  11. NOVONORM [Concomitant]
     Active Substance: REPAGLINIDE
     Indication: DIABETES MELLITUS
     Dosage: 1 MG, TID
     Dates: start: 201112
  12. DIFFU K [Concomitant]
     Active Substance: POTASSIUM CHLORIDE
     Dosage: 600 MG, TID
  13. COUMADINE [Concomitant]
     Active Substance: WARFARIN SODIUM
     Dosage: 1 UNK, UNK
  14. MIOREL [Concomitant]
     Active Substance: THIOCOLCHICOSIDE
     Dosage: 4 MG, BID

REACTIONS (2)
  - Ascites [Recovering/Resolving]
  - Oedema [Recovering/Resolving]

NARRATIVE: CASE EVENT DATE: 20140323
